FAERS Safety Report 15862508 (Version 5)
Quarter: 2019Q4

REPORT INFORMATION
  Report Type: Spontaneous
  Country: US (occurrence: US)
  Receive Date: 20190124
  Receipt Date: 20191114
  Transmission Date: 20200122
  Serious: No
  Sender: FDA-Public Use
  Company Number: US-VERTEX PHARMACEUTICALS-2019-000023

PATIENT
  Age: 5 Year
  Sex: Female

DRUGS (1)
  1. ORKAMBI [Suspect]
     Active Substance: IVACAFTOR\LUMACAFTOR
     Indication: CYSTIC FIBROSIS
     Dosage: 150/188 MG, BID
     Route: 048
     Dates: start: 20181222

REACTIONS (8)
  - Pseudomonas infection [Unknown]
  - Gastroenteritis viral [Unknown]
  - Vomiting [Recovered/Resolved]
  - Retching [Unknown]
  - Headache [Unknown]
  - Nasal discharge discolouration [Unknown]
  - Nasal congestion [Not Recovered/Not Resolved]
  - Cough [Not Recovered/Not Resolved]

NARRATIVE: CASE EVENT DATE: 201812
